FAERS Safety Report 9607396 (Version 1)
Quarter: 2013Q4

REPORT INFORMATION
  Report Type: Spontaneous
  Country: US (occurrence: None)
  Receive Date: 20131007
  Receipt Date: 20131007
  Transmission Date: 20140711
  Serious: Yes (Disabling)
  Sender: FDA-Public Use
  Company Number: None

PATIENT
  Age: 88 Year
  Sex: Female
  Weight: 59.88 kg

DRUGS (2)
  1. CLINDAMYCIN HCL [Suspect]
     Indication: ENDODONTIC PROCEDURE
     Dosage: 2 PILLS, THEN  THREE TIMES DAILY TAKEN BY MOUTH
     Route: 048
     Dates: start: 20130216, end: 20130221
  2. CLINDAMYCIN HCL [Suspect]
     Indication: TOOTH EXTRACTION
     Dosage: 2 PILLS, THEN  THREE TIMES DAILY TAKEN BY MOUTH
     Route: 048
     Dates: start: 20130216, end: 20130221

REACTIONS (1)
  - Clostridium difficile colitis [None]
